FAERS Safety Report 14848478 (Version 1)
Quarter: 2018Q2

REPORT INFORMATION
  Report Type: Spontaneous
  Country: US (occurrence: US)
  Receive Date: 20180504
  Receipt Date: 20180504
  Transmission Date: 20180711
  Serious: No
  Sender: FDA-Public Use
  Company Number: US-TAIHO ONCOLOGY INC-EU-2018-00564

PATIENT
  Sex: Male
  Weight: 98.16 kg

DRUGS (1)
  1. LONSURF [Suspect]
     Active Substance: TIPIRACIL HYDROCHLORIDE\TRIFLURIDINE
     Indication: COLON CANCER
     Dosage: CYCLE 1: 80MG AM, 60MG PM
     Route: 048
     Dates: start: 20170711, end: 2018

REACTIONS (2)
  - Malaise [Unknown]
  - Disease progression [Unknown]

NARRATIVE: CASE EVENT DATE: 2018
